FAERS Safety Report 20100076 (Version 3)
Quarter: 2022Q1

REPORT INFORMATION
  Report Type: Spontaneous
  Country: JP (occurrence: JP)
  Receive Date: 20211123
  Receipt Date: 20220209
  Transmission Date: 20220423
  Serious: Yes (Hospitalization, Other)
  Sender: FDA-Public Use
  Company Number: JP-CHUGAI-2021026105

PATIENT
  Age: 53 Year
  Sex: Female
  Weight: 65.8 kg

DRUGS (20)
  1. MIRCERA [Suspect]
     Active Substance: METHOXY POLYETHYLENE GLYCOL-EPOETIN BETA
     Indication: Nephrogenic anaemia
     Dosage: 250 MICROGRAM, ONCE/4WEEKS
     Route: 058
     Dates: start: 2018
  2. MIRCERA [Suspect]
     Active Substance: METHOXY POLYETHYLENE GLYCOL-EPOETIN BETA
     Dosage: 100 MICROGRAM, ONCE/MONTH
     Route: 058
     Dates: start: 20181005
  3. MIRCERA [Suspect]
     Active Substance: METHOXY POLYETHYLENE GLYCOL-EPOETIN BETA
     Dosage: 250 MICROGRAM, ONCE/4WEEKS
     Route: 058
     Dates: start: 20190927
  4. IMIDAPRIL [Concomitant]
     Active Substance: IMIDAPRIL
     Dosage: 10 MILLIGRAM, QD
     Route: 048
     Dates: start: 20210716
  5. AMLODIPINE BESYLATE\TELMISARTAN [Concomitant]
     Active Substance: AMLODIPINE BESYLATE\TELMISARTAN
     Dosage: 1 DOSAGE FORM, 1 TAB, QD
     Route: 048
     Dates: start: 20210716
  6. FUROSEMIDE [Concomitant]
     Active Substance: FUROSEMIDE
     Dosage: 20 MILLIGRAM, QD
     Route: 048
     Dates: start: 20210716
  7. ATORVASTATIN [Concomitant]
     Active Substance: ATORVASTATIN
     Dosage: 2.5 GRAM, BID
     Route: 048
     Dates: start: 20210716
  8. ATORVASTATIN [Concomitant]
     Active Substance: ATORVASTATIN
     Dosage: 2.5 GRAM, QD
     Route: 048
     Dates: start: 20210716
  9. ATORVASTATIN [Concomitant]
     Active Substance: ATORVASTATIN
     Dosage: 10 MILLIGRAM, QD
     Route: 048
     Dates: start: 20210716
  10. FEBUXOSTAT [Concomitant]
     Active Substance: FEBUXOSTAT
     Dosage: 10 MILLIGRAM, QD
     Route: 048
     Dates: start: 20210716
  11. TRICHLORMETHIAZIDE [Concomitant]
     Active Substance: TRICHLORMETHIAZIDE
     Dosage: 1 MILLIGRAM, QD
     Route: 048
  12. CALCIUM CARBONATE [Concomitant]
     Active Substance: CALCIUM CARBONATE
     Dosage: 1000 MILLIGRAM, BID
     Route: 048
     Dates: start: 20210716
  13. FERRIC CITRATE ANHYDROUS [Concomitant]
     Active Substance: FERRIC CITRATE ANHYDROUS
     Dosage: 500 MILLIGRAM, BID
     Route: 048
     Dates: start: 20210716
  14. RUPAFIN [Concomitant]
     Active Substance: RUPATADINE FUMARATE
     Dosage: 20 MILLIGRAM, QD
     Route: 048
     Dates: start: 20210716
  15. DIPHENHYDRAMINE [Concomitant]
     Active Substance: DIPHENHYDRAMINE
     Dosage: UNK, QD
     Route: 003
     Dates: start: 20210716
  16. HEPARINOID [Concomitant]
     Dosage: UNK, QD
     Dates: start: 20210716
  17. FERROUS SULFATE [Concomitant]
     Active Substance: FERROUS SULFATE
     Dosage: 105 MILLIGRAM, QD
     Route: 048
     Dates: start: 20210716
  18. KAYEXALATE [Concomitant]
     Active Substance: SODIUM POLYSTYRENE SULFONATE
     Dosage: 1 DOSAGE FORM, QD
     Route: 048
     Dates: start: 20210716
  19. ETIZOLAM [Concomitant]
     Active Substance: ETIZOLAM
     Dosage: 0.5 MILLIGRAM, BID
     Route: 048
  20. LOXOPROFEN SODIUM [Concomitant]
     Active Substance: LOXOPROFEN SODIUM
     Dosage: 2 DOSAGE FORM, QD
     Route: 061
     Dates: start: 20210716

REACTIONS (4)
  - Gastric antral vascular ectasia [Not Recovered/Not Resolved]
  - Haemoglobin decreased [Not Recovered/Not Resolved]
  - Aplasia pure red cell [Unknown]
  - Inflammation [Unknown]

NARRATIVE: CASE EVENT DATE: 20210101
